FAERS Safety Report 22231357 (Version 1)
Quarter: 2023Q2

REPORT INFORMATION
  Report Type: Spontaneous
  Country: FR (occurrence: FR)
  Receive Date: 20230420
  Receipt Date: 20230420
  Transmission Date: 20230722
  Serious: Yes (Life-Threatening, Other)
  Sender: FDA-Public Use
  Company Number: None

PATIENT
  Age: 32 Year
  Sex: Female
  Weight: 150 kg

DRUGS (16)
  1. LOVENOX [Suspect]
     Active Substance: ENOXAPARIN SODIUM
     Indication: Thrombosis prophylaxis
     Dosage: 6000 IU, QD
     Route: 058
     Dates: start: 20230210, end: 20230210
  2. PROPOFOL [Suspect]
     Active Substance: PROPOFOL
     Indication: Induction of anaesthesia
     Dosage: 400MG, TOTAL
     Route: 042
     Dates: start: 20230210, end: 20230210
  3. CLINDAMYCIN HYDROCHLORIDE [Suspect]
     Active Substance: CLINDAMYCIN HYDROCHLORIDE
     Indication: Antibiotic prophylaxis
     Dosage: 900MG, QD
     Route: 042
     Dates: start: 20230210, end: 20230210
  4. TRAMADOL HYDROCHLORIDE [Suspect]
     Active Substance: TRAMADOL HYDROCHLORIDE
     Indication: Pain
     Dosage: 50MG, QD
     Route: 048
     Dates: start: 20230210, end: 20230210
  5. SUFENTANIL [Suspect]
     Active Substance: SUFENTANIL
     Indication: Induction of anaesthesia
     Dosage: 20UG, TOTAL
     Route: 042
     Dates: start: 20230210, end: 20230210
  6. CARBETOCIN [Suspect]
     Active Substance: CARBETOCIN
     Indication: Haemorrhage prophylaxis
     Dosage: 100MG, QD
     Route: 042
     Dates: start: 20230210, end: 20230210
  7. ROCURONIUM BROMIDE [Suspect]
     Active Substance: ROCURONIUM BROMIDE
     Indication: Induction of anaesthesia
     Dosage: 50MG, TOTAL
     Route: 042
     Dates: start: 20230210, end: 20230210
  8. LEVOBUPIVACAINE HYDROCHLORIDE [Suspect]
     Active Substance: LEVOBUPIVACAINE HYDROCHLORIDE
     Indication: Nerve block
     Dosage: 1,25 MG/ML
     Route: 008
     Dates: start: 20230209, end: 20230210
  9. BRIDION [Suspect]
     Active Substance: SUGAMMADEX
     Indication: Neuromuscular blockade reversal
     Dosage: 600MG, TOTAL
     Route: 042
     Dates: start: 20230210, end: 20230210
  10. CELOCURIN [Suspect]
     Active Substance: SUCCINYLCHOLINE CHLORIDE
     Indication: Induction of anaesthesia
     Dosage: 100MG, QD
     Dates: start: 20230210, end: 20230210
  11. EPINEPHRINE BITARTRATE\LIDOCAINE HYDROCHLORIDE [Suspect]
     Active Substance: EPINEPHRINE BITARTRATE\LIDOCAINE HYDROCHLORIDE
     Indication: Nerve block
     Dosage: 400MG, TOTAL
     Route: 008
     Dates: start: 20230209, end: 20230210
  12. KETOPROFEN [Suspect]
     Active Substance: KETOPROFEN
     Indication: Pain
     Dosage: 100MG, QD
     Route: 042
     Dates: start: 20230210, end: 20230210
  13. NOREPINEPHRINE BITARTRATE [Suspect]
     Active Substance: NOREPINEPHRINE BITARTRATE
     Indication: Product used for unknown indication
     Dosage: 37MICROGRAM
     Route: 042
     Dates: start: 20230210, end: 20230210
  14. SUFENTANIL CITRATE [Suspect]
     Active Substance: SUFENTANIL CITRATE
     Indication: Nerve block
     Dosage: UNK, TOTAL
     Route: 008
     Dates: start: 20230209, end: 20230210
  15. PHLOROGLUCINOL\1,3,5-TRIMETHOXYBENZENE [Concomitant]
     Active Substance: PHLOROGLUCINOL\1,3,5-TRIMETHOXYBENZENE
  16. ACETAMINOPHEN [Concomitant]
     Active Substance: ACETAMINOPHEN

REACTIONS (2)
  - Acute generalised exanthematous pustulosis [Recovering/Resolving]
  - Drug reaction with eosinophilia and systemic symptoms [Recovering/Resolving]

NARRATIVE: CASE EVENT DATE: 20230210
